FAERS Safety Report 12956708 (Version 1)
Quarter: 2016Q4

REPORT INFORMATION
  Report Type: Spontaneous
  Country: US (occurrence: US)
  Receive Date: 20161119
  Receipt Date: 20161119
  Transmission Date: 20170207
  Serious: Yes (Other)
  Sender: FDA-Public Use
  Company Number: US-ASTRAZENECA-2016SF21369

PATIENT
  Age: 76 Year
  Sex: Female

DRUGS (1)
  1. ROSUVASTATIN. [Suspect]
     Active Substance: ROSUVASTATIN
     Route: 048

REACTIONS (5)
  - Myositis [Recovered/Resolved]
  - Rhabdomyolysis [Recovered/Resolved]
  - Multiple organ dysfunction syndrome [Unknown]
  - Pancreatitis acute [Recovered/Resolved]
  - Transaminases increased [Recovering/Resolving]
